FAERS Safety Report 21876396 (Version 1)
Quarter: 2023Q1

REPORT INFORMATION
  Report Type: Spontaneous
  Country: RO (occurrence: RO)
  Receive Date: 20230118
  Receipt Date: 20230118
  Transmission Date: 20230417
  Serious: Yes (Other)
  Sender: FDA-Public Use
  Company Number: RO-ABBVIE-4274082

PATIENT
  Age: 69 Year
  Sex: Female

DRUGS (8)
  1. VENETOCLAX [Suspect]
     Active Substance: VENETOCLAX
     Indication: Acute myeloid leukaemia
     Dosage: DAY 1: 100 MG, DAY 2: 200 MG, AFTER DAY 3: 400 MG
     Route: 048
     Dates: start: 20220608
  2. ALLOPURINOL [Concomitant]
     Active Substance: ALLOPURINOL
     Indication: Prophylaxis
  3. BISEPTOL [Concomitant]
     Active Substance: SULFAMETHOXAZOLE\TRIMETHOPRIM
     Indication: Antifungal prophylaxis
     Dosage: 480 MILLIGRAM?FREQUENCY TEXT: 2 TABS X 2/DAY, MONDAY,WEDNESDAY, FRIDAY
  4. HYDROXYUREA [Concomitant]
     Active Substance: HYDROXYUREA
     Indication: Leukostasis syndrome
  5. ACYCLOVIR [Concomitant]
     Active Substance: ACYCLOVIR
     Indication: Prophylaxis
  6. AZACITIDINE [Concomitant]
     Active Substance: AZACITIDINE
     Indication: Acute myeloid leukaemia
     Dosage: 50 MG/M2
     Dates: start: 20220722
  7. AZACITIDINE [Concomitant]
     Active Substance: AZACITIDINE
     Indication: Acute myeloid leukaemia
     Dosage: 130 MILLIGRAM
     Dates: start: 20220608
  8. POSACONAZOLE [Concomitant]
     Active Substance: POSACONAZOLE
     Indication: Antifungal prophylaxis

REACTIONS (6)
  - Neutropenia [Unknown]
  - COVID-19 [Unknown]
  - Sepsis [Unknown]
  - Adrenal insufficiency [Unknown]
  - Thrombocytopenia [Unknown]
  - Cytopenia [Unknown]

NARRATIVE: CASE EVENT DATE: 20221114
